FAERS Safety Report 8669437 (Version 4)
Quarter: 2012Q4

REPORT INFORMATION
  Report Type: 
  Country: CO (occurrence: CO)
  Receive Date: 20120718
  Receipt Date: 20121017
  Transmission Date: 20130627
  Serious: Yes (Other)
  Sender: FDA-Public Use
  Company Number: CO-AMGEN-COLSP2012042993

PATIENT
  Age: 66 Year
  Sex: Female

DRUGS (9)
  1. ENBREL [Suspect]
     Indication: RHEUMATOID ARTHRITIS
     Dosage: 50 mg, weekly
     Route: 058
     Dates: start: 201204
  2. INSULIN [Concomitant]
     Indication: DIABETES MELLITUS
     Dosage: 15 mg, 1x/day
     Route: 058
  3. CALCITRIOL [Concomitant]
     Indication: OSTEOPOROSIS
     Dosage: UNK
     Route: 048
  4. VERAPAMIL [Concomitant]
     Indication: HYPERTENSION
     Dosage: 80 mg, 1x/day
     Route: 048
  5. OMEPRAZOL                          /00661201/ [Concomitant]
     Dosage: 20 mg, UNK
     Route: 065
  6. ACETAMINOPHEN [Concomitant]
     Dosage: UNK
     Route: 065
  7. ASPIRINE [Concomitant]
     Dosage: UNK
     Route: 065
  8. FOLIC ACID [Concomitant]
     Dosage: UNK
     Route: 065
  9. OMEPRAZOL [Concomitant]
     Dosage: 20 mg, UNK
     Route: 065

REACTIONS (4)
  - Hypoacusis [Not Recovered/Not Resolved]
  - Cough [Recovering/Resolving]
  - Pyrexia [Recovered/Resolved]
  - Vomiting [Recovering/Resolving]
